FAERS Safety Report 19800754 (Version 1)
Quarter: 2021Q3

REPORT INFORMATION
  Report Type: Spontaneous
  Country: US (occurrence: US)
  Receive Date: 20210907
  Receipt Date: 20210907
  Transmission Date: 20211014
  Serious: No
  Sender: FDA-Public Use
  Company Number: US-PERRIGO-20US013534

PATIENT
  Age: 48 Year
  Sex: Male
  Weight: 72.56 kg

DRUGS (4)
  1. TRIAMCINOLONE ACETONIDE. [Suspect]
     Active Substance: TRIAMCINOLONE ACETONIDE
     Indication: HYPERSENSITIVITY
     Dosage: 110 MCG IN EACH NOSTRIL, QD
     Route: 045
     Dates: start: 201903, end: 201903
  2. TRIAMCINOLONE ACETONIDE. [Suspect]
     Active Substance: TRIAMCINOLONE ACETONIDE
     Dosage: 110 MCG IN EACH NOSTRIL, QD
     Route: 045
     Dates: start: 20200911
  3. TRIAMCINOLONE ACETONIDE. [Suspect]
     Active Substance: TRIAMCINOLONE ACETONIDE
     Dosage: 55 MCG IN EACH NOSTRIL, QD
     Route: 045
     Dates: start: 201903, end: 20200910
  4. LEVOCETIRIZINE DIHYDROCHLORIDE. [Concomitant]
     Active Substance: LEVOCETIRIZINE DIHYDROCHLORIDE
     Indication: HYPERSENSITIVITY
     Dosage: UNK
     Route: 065
     Dates: start: 201903

REACTIONS (2)
  - Incorrect product administration duration [Not Recovered/Not Resolved]
  - Therapeutic product effect decreased [Unknown]

NARRATIVE: CASE EVENT DATE: 20200801
